FAERS Safety Report 5554968-0 (Version None)
Quarter: 2007Q4

REPORT INFORMATION
  Report Type: 
  Country: None (occurrence: None)
  Receive Date: 20071213
  Receipt Date: 20071205
  Transmission Date: 20080405
  Serious: Yes (Other)
  Sender: FDA-Public Use
  Company Number: US-JNJFOC-20071202254

PATIENT
  Age: 30 Year
  Sex: Female
  Weight: 88.45 kg

DRUGS (6)
  1. CONCERTA [Suspect]
     Route: 048
  2. CONCERTA [Suspect]
     Indication: ATTENTION DEFICIT/HYPERACTIVITY DISORDER
     Route: 048
  3. NAPROSYN [Concomitant]
     Indication: DYSMENORRHOEA
     Route: 048
  4. SEREVENT [Concomitant]
     Indication: ASTHMA
  5. PULMICORT [Concomitant]
     Indication: ASTHMA
  6. SINGULAIR [Concomitant]
     Indication: ASTHMA

REACTIONS (9)
  - CHEST DISCOMFORT [None]
  - DYSKINESIA [None]
  - HYPERTENSION [None]
  - HYPOAESTHESIA [None]
  - HYPOAESTHESIA FACIAL [None]
  - INSOMNIA [None]
  - MUSCLE TWITCHING [None]
  - PARAESTHESIA [None]
  - WEIGHT DECREASED [None]
